FAERS Safety Report 9774885 (Version 2)
Quarter: 2014Q1

REPORT INFORMATION
  Report Type: Spontaneous
  Country: US (occurrence: US)
  Receive Date: 20131220
  Receipt Date: 20140221
  Transmission Date: 20141002
  Serious: No
  Sender: FDA-Public Use
  Company Number: US-B.I. PHARMACEUTICALS,INC./RIDGEFIELD-2013-BI-40653BP

PATIENT
  Age: 68 Year
  Sex: Male
  Weight: 113 kg

DRUGS (4)
  1. COMBIVENT [Suspect]
     Indication: CHRONIC OBSTRUCTIVE PULMONARY DISEASE
     Dosage: DOSE PER APPLICATION: 20 MCG / 100 MCG; DAILY DOSE: 80 MCG/400 MCG
     Route: 055
     Dates: start: 201305
  2. ADVAIR [Concomitant]
  3. ALBUTEROL [Concomitant]
  4. OXYGEN 4 LITERS PER MINUTE [Concomitant]
     Dosage: DOSE PER APPLICATION: 4L/ MIN

REACTIONS (2)
  - Drug administration error [Not Recovered/Not Resolved]
  - Product quality issue [Unknown]
